FAERS Safety Report 9868559 (Version 1)
Quarter: 2014Q1

REPORT INFORMATION
  Report Type: Spontaneous
  Country: IN (occurrence: IN)
  Receive Date: 20140204
  Receipt Date: 20140204
  Transmission Date: 20141002
  Serious: Yes (Other)
  Sender: FDA-Public Use
  Company Number: IN-MYLANLABS-2014S1001632

PATIENT
  Age: 49 Year
  Sex: Male

DRUGS (2)
  1. IRINOTECAN [Suspect]
     Indication: SMALL CELL LUNG CANCER EXTENSIVE STAGE
     Dosage: 65 MG/M2 ON D1, D8 OF 3W CYCLE
     Route: 065
  2. CISPLATIN [Suspect]
     Indication: SMALL CELL LUNG CANCER EXTENSIVE STAGE
     Dosage: 30 MG/M2 ON D1, D8 OF 3W CYCLE
     Route: 065

REACTIONS (1)
  - Tuberculous pleurisy [Recovering/Resolving]
